FAERS Safety Report 7369572-1 (Version None)
Quarter: 2011Q1

REPORT INFORMATION
  Report Type: 
  Country: None (occurrence: None)
  Receive Date: 20110314
  Receipt Date: 20110208
  Transmission Date: 20110831
  Serious: Yes (Congenital Anomaly)
  Sender: FDA-Public Use
  Company Number: ADR-UNK-016

PATIENT
  Age: 238 Day
  Sex: Female
  Weight: 2.35 kg

DRUGS (4)
  1. DARUNAVIR [Concomitant]
  2. RITONAVIR [Concomitant]
  3. LAMIVUDINE AND ZIDOVUDINE [Concomitant]
  4. ZIDOVUDINE [Suspect]
     Indication: ACQUIRED IMMUNODEFICIENCY SYNDROME
     Dosage: ORAL
     Route: 048
     Dates: start: 20100603, end: 20100603

REACTIONS (4)
  - FOETAL GROWTH RESTRICTION [None]
  - CONGENITAL ANOMALY [None]
  - MATERNAL DRUGS AFFECTING FOETUS [None]
  - PREMATURE LABOUR [None]
